FAERS Safety Report 23427791 (Version 2)
Quarter: 2024Q1

REPORT INFORMATION
  Report Type: Spontaneous
  Country: US (occurrence: US)
  Receive Date: 20240122
  Receipt Date: 20240220
  Transmission Date: 20240410
  Serious: No
  Sender: FDA-Public Use
  Company Number: US-BIOGEN-2024BI01246413

PATIENT
  Age: 44 Year
  Sex: Female

DRUGS (1)
  1. TYSABRI [Suspect]
     Active Substance: NATALIZUMAB
     Indication: Multiple sclerosis
     Route: 050
     Dates: start: 20160216

REACTIONS (1)
  - COVID-19 [Unknown]

NARRATIVE: CASE EVENT DATE: 20230117
